FAERS Safety Report 24038730 (Version 2)
Quarter: 2024Q3

REPORT INFORMATION
  Report Type: Spontaneous
  Country: DK (occurrence: DK)
  Receive Date: 20240702
  Receipt Date: 20240725
  Transmission Date: 20241016
  Serious: Yes (Other)
  Sender: ROCHE
  Company Number: None

PATIENT
  Age: 57 Year
  Sex: Female
  Weight: 60 kg

DRUGS (2)
  1. BONVIVA [Suspect]
     Active Substance: IBANDRONATE SODIUM
     Indication: Osteoporosis
     Route: 065
     Dates: start: 20230921, end: 20230921
  2. FEXOFENADINE [Concomitant]
     Active Substance: FEXOFENADINE HYDROCHLORIDE
     Indication: Urticaria chronic
     Dates: start: 20201117

REACTIONS (7)
  - Cardiac fibrillation [Recovered/Resolved]
  - Myalgia [Recovered/Resolved]
  - Urticaria [Recovering/Resolving]
  - Arthralgia [Recovered/Resolved]
  - Bone pain [Recovered/Resolved]
  - Palpitations [Unknown]
  - Chest discomfort [Unknown]

NARRATIVE: CASE EVENT DATE: 20230923
